FAERS Safety Report 8301896-3 (Version None)
Quarter: 2012Q2

REPORT INFORMATION
  Report Type: 
  Country: None (occurrence: None)
  Receive Date: 20120418
  Receipt Date: 20120418
  Transmission Date: 20120825
  Serious: Yes (Life-Threatening)
  Sender: FDA-Public Use
  Company Number: None

PATIENT
  Sex: Male

DRUGS (2)
  1. PEGASYS [Suspect]
     Indication: HEPATITIS C
     Dosage: 180 MCG ONCE A WK. SQ
     Route: 058
     Dates: start: 20111206, end: 20120404
  2. RIBASPHERE [Suspect]
     Indication: HEPATITIS C
     Dosage: 600MG BID ORAL
     Route: 048
     Dates: start: 20111206, end: 20120404

REACTIONS (3)
  - ANAEMIA [None]
  - RASH [None]
  - PNEUMONIA [None]
